FAERS Safety Report 17038960 (Version 4)
Quarter: 2019Q4

REPORT INFORMATION
  Report Type: Spontaneous
  Country: IT (occurrence: IT)
  Receive Date: 20191115
  Receipt Date: 20191228
  Transmission Date: 20200122
  Serious: Yes (Death, Other)
  Sender: FDA-Public Use
  Company Number: IT-ALEXION PHARMACEUTICALS INC.-A201915917

PATIENT
  Age: 82 Year
  Sex: Female
  Weight: 89 kg

DRUGS (3)
  1. SOLIRIS [Suspect]
     Active Substance: ECULIZUMAB
     Dosage: UNK
     Route: 065
  2. HEPARIN [Concomitant]
     Active Substance: HEPARIN SODIUM
     Indication: PRODUCT USED FOR UNKNOWN INDICATION
     Dosage: UNK
     Route: 065
  3. SOLIRIS [Suspect]
     Active Substance: ECULIZUMAB
     Indication: ATYPICAL HAEMOLYTIC URAEMIC SYNDROME
     Dosage: 900 MG, EVERY WEEK
     Route: 042
     Dates: start: 20190807, end: 20190828

REACTIONS (14)
  - Dialysis [Unknown]
  - Haemoglobin decreased [Unknown]
  - Postoperative wound infection [Fatal]
  - Renal cortical necrosis [Unknown]
  - Proteus test positive [Fatal]
  - Hypotension [Unknown]
  - Sepsis [Fatal]
  - Haematocrit decreased [Unknown]
  - Klebsiella test positive [Fatal]
  - Platelet count decreased [Unknown]
  - General physical health deterioration [Fatal]
  - White blood cell count increased [Unknown]
  - Red blood cell count decreased [Unknown]
  - Red cell distribution width increased [Unknown]

NARRATIVE: CASE EVENT DATE: 201910
